FAERS Safety Report 16766646 (Version 1)
Quarter: 2019Q3

REPORT INFORMATION
  Report Type: Spontaneous
  Country: GB (occurrence: GB)
  Receive Date: 20190903
  Receipt Date: 20190903
  Transmission Date: 20191005
  Serious: Yes (Hospitalization)
  Sender: FDA-Public Use
  Company Number: GB-TEVA-2019-GB-1100463

PATIENT
  Age: 81 Year
  Sex: Male

DRUGS (14)
  1. TIOTROPIUM BROMIDE [Concomitant]
     Active Substance: TIOTROPIUM BROMIDE
     Dosage: 2.5 MILLIGRAM
     Route: 055
  2. TAMSULOSIN [Suspect]
     Active Substance: TAMSULOSIN
     Dosage: 400 MILLIGRAM
  3. VENTOLIN [Concomitant]
     Active Substance: ALBUTEROL SULFATE
     Dosage: ONE OR TWO PUFFS TO BE INHALED UP TO FOUR TIMES A DAY, 100 MICROGRAM
     Route: 055
  4. CLARITHROMYCIN. [Concomitant]
     Active Substance: CLARITHROMYCIN
  5. CARBOCISTEINE [Concomitant]
     Active Substance: CARBOCYSTEINE
     Dosage: 2250 MILLIGRAM
  6. SALBUTAMOL [Concomitant]
     Active Substance: ALBUTEROL
  7. FOSTAIR [Concomitant]
     Active Substance: BECLOMETHASONE\FORMOTEROL
     Dosage: PUFFS. 100MICROGRAMS/DOSE / 6MICROGRAMS, 4 DOSAGE FORMS
     Route: 055
  8. IPRATROPIUM [Concomitant]
     Active Substance: IPRATROPIUM
     Dosage: 500MICROGRAMS/2ML. EVERY 4-6 HOURS, 1 DOSAGE FORMS
  9. SPIRIVA [Concomitant]
     Active Substance: TIOTROPIUM BROMIDE MONOHYDRATE
     Dosage: PUFFS, 5 MICROGRAM
     Route: 055
  10. ATENOLOL. [Concomitant]
     Active Substance: ATENOLOL
     Dosage: 25 MILLIGRAM
  11. ATORVASTATIN [Suspect]
     Active Substance: ATORVASTATIN
     Dosage: 10 MILLIGRAM
     Route: 065
  12. WARFARIN [Suspect]
     Active Substance: WARFARIN
     Indication: MITRAL VALVE DISEASE
     Route: 065
  13. FOLIC ACID. [Concomitant]
     Active Substance: FOLIC ACID
     Dosage: 5 MILLIGRAM
  14. ALLOPURINOL. [Concomitant]
     Active Substance: ALLOPURINOL
     Dosage: 200 MILLIGRAM

REACTIONS (2)
  - Hypotension [Unknown]
  - Epistaxis [Unknown]
